FAERS Safety Report 8379870-0 (Version None)
Quarter: 2012Q2

REPORT INFORMATION
  Report Type: 
  Country: None (occurrence: None)
  Receive Date: 20120523
  Receipt Date: 20120517
  Transmission Date: 20120825
  Serious: Yes (Life-Threatening)
  Sender: FDA-Public Use
  Company Number: IT-PFIZER INC-2012120906

PATIENT
  Age: 56 Year
  Sex: Male

DRUGS (3)
  1. CARBOPLATIN [Suspect]
     Indication: LYMPHOMA
     Dosage: 525 MG TOTAL DOSE
     Route: 041
     Dates: start: 20110106, end: 20110106
  2. CYTARABINE [Suspect]
     Indication: LYMPHOMA
     Dosage: 14.8 G WEEKLY
     Route: 041
     Dates: start: 20110106, end: 20110107
  3. ETOPOSIDE [Suspect]
     Indication: LYMPHOMA
     Dosage: 555 MG TOTAL DOSE
     Route: 041
     Dates: start: 20110106, end: 20110108

REACTIONS (2)
  - PNEUMONIA [None]
  - FEBRILE NEUTROPENIA [None]
